FAERS Safety Report 9368545 (Version 2)
Quarter: 2013Q3

REPORT INFORMATION
  Report Type: Spontaneous
  Country: FR (occurrence: FR)
  Receive Date: 20130626
  Receipt Date: 20130711
  Transmission Date: 20140515
  Serious: Yes (Hospitalization, Other)
  Sender: FDA-Public Use
  Company Number: FR-ROCHE-1240614

PATIENT
  Sex: Male
  Weight: 68 kg

DRUGS (4)
  1. ZELBORAF [Suspect]
     Indication: METASTATIC MALIGNANT MELANOMA
     Route: 048
     Dates: start: 20130313
  2. CHONDROSTEO [Concomitant]
     Route: 048
  3. PERMIXON [Concomitant]
     Route: 048
  4. DAFLON (FRANCE) [Concomitant]
     Route: 048

REACTIONS (2)
  - Pericarditis [Recovering/Resolving]
  - Cardiac tamponade [Unknown]
